FAERS Safety Report 9153900 (Version 1)
Quarter: 2013Q1

REPORT INFORMATION
  Report Type: Spontaneous
  Country: FR (occurrence: None)
  Receive Date: 20130207
  Receipt Date: 20130207
  Transmission Date: 20140127
  Serious: Yes (Hospitalization)
  Sender: FDA-Public Use
  Company Number: VAL_01297_2013

PATIENT
  Age: 47 Year
  Sex: Male
  Weight: 85 kg

DRUGS (10)
  1. CARBAMAZEPINE (CARBAMAZEPINE) CHEWABLE TABLET [Suspect]
     Indication: NEURALGIA
     Dosage: INTRODUCED GRADUALLY AS RECOMMENDED UNTIL AN USUAL DOSE OF 300 MG TWICE A DAY (EXTENDED RELEASE)
  2. FLUINDIONE [Suspect]
     Indication: ANTICOAGULANT THERAPY
  3. DILTIAZEM [Concomitant]
  4. LANSOPRAZOLE [Concomitant]
  5. DOMPERIDONE [Concomitant]
  6. KETOPROFEN [Concomitant]
  7. ZOPICLONE [Concomitant]
  8. ACETAMINOPHEN [Concomitant]
  9. PREGABALINE [Concomitant]
  10. ACENOCCUMAROL [Concomitant]

REACTIONS (4)
  - International normalised ratio decreased [None]
  - Drug resistance [None]
  - Drug interaction [None]
  - International normalised ratio fluctuation [None]
